FAERS Safety Report 11189462 (Version 1)
Quarter: 2015Q2

REPORT INFORMATION
  Report Type: Spontaneous
  Country: IT (occurrence: IT)
  Receive Date: 20150615
  Receipt Date: 20150615
  Transmission Date: 20150821
  Serious: Yes (Death)
  Sender: FDA-Public Use
  Company Number: IT-ACTAVIS-2015-11713

PATIENT
  Age: 78 Year
  Sex: Female

DRUGS (5)
  1. CARDIOASPIRIN [Concomitant]
     Active Substance: ASPIRIN
     Indication: PRODUCT USED FOR UNKNOWN INDICATION
     Dosage: UNK UNK, UNKNOWN
     Route: 065
  2. MOTILIUM [Concomitant]
     Active Substance: DOMPERIDONE
     Indication: PRODUCT USED FOR UNKNOWN INDICATION
     Dosage: UNK UNK, UNKNOWN
     Route: 065
  3. SODIUM PHOSPHATE DIBASIC [Suspect]
     Active Substance: SODIUM PHOSPHATE, DIBASIC
     Indication: CONSTIPATION
     Dosage: 1 DF, TOTAL
     Route: 054
     Dates: start: 20150519, end: 20150519
  4. LANOXIN [Suspect]
     Active Substance: DIGOXIN
     Indication: CARDIAC FAILURE CHRONIC
     Dosage: 0.12 MG, DAILY
     Route: 048
     Dates: start: 20100101, end: 20150519
  5. LACTULOSE (UNKNOWN) [Suspect]
     Active Substance: LACTULOSE
     Indication: CONSTIPATION
     Dosage: 3 DF, DAILY
     Route: 048
     Dates: start: 20150201, end: 20150519

REACTIONS (9)
  - Abdominal distension [None]
  - Abdominal pain [Fatal]
  - Drug interaction [Fatal]
  - Hyperkalaemia [Fatal]
  - Acute abdomen [Fatal]
  - Cardiac arrest [None]
  - Rales [None]
  - Diarrhoea [Fatal]
  - Lung hyperinflation [None]

NARRATIVE: CASE EVENT DATE: 20150519
